FAERS Safety Report 7799521-3 (Version None)
Quarter: 2011Q4

REPORT INFORMATION
  Report Type: 
  Country: None (occurrence: None)
  Receive Date: 20111006
  Receipt Date: 20110927
  Transmission Date: 20120403
  Serious: Yes (Hospitalization)
  Sender: FDA-Public Use
  Company Number: GB-SHIRE-ALL1-2011-03630

PATIENT
  Sex: Female

DRUGS (2)
  1. MESALAMINE [Suspect]
     Indication: COLITIS ULCERATIVE
     Dosage: 1200 MG, UNKNOWN
     Route: 048
     Dates: start: 20110701, end: 20110823
  2. AZATHIOPRINE [Concomitant]
     Indication: COLITIS ULCERATIVE
     Dosage: 75 MG, UNKNOWN
     Route: 048
     Dates: start: 20080801, end: 20110919

REACTIONS (5)
  - PLEURAL FIBROSIS [None]
  - COUGH [None]
  - PLEURITIC PAIN [None]
  - PYREXIA [None]
  - EOSINOPHILIA [None]
